FAERS Safety Report 20024535 (Version 1)
Quarter: 2021Q4

REPORT INFORMATION
  Report Type: Other
  Country: PT (occurrence: None)
  Receive Date: 20211102
  Receipt Date: 20211102
  Transmission Date: 20220303
  Serious: Yes (Death)
  Sender: FDA-Public Use
  Company Number: PT-ROCHE-2945093

PATIENT
  Age: 29 Year
  Sex: Male

DRUGS (8)
  1. VISMODEGIB [Suspect]
     Active Substance: VISMODEGIB
     Indication: Basal cell carcinoma
     Route: 065
     Dates: start: 201706, end: 201712
  2. PEMBROLIZUMAB [Suspect]
     Active Substance: PEMBROLIZUMAB
     Indication: Basal cell carcinoma
     Route: 065
     Dates: start: 201712, end: 201804
  3. CISPLATIN [Concomitant]
     Active Substance: CISPLATIN
  4. FLUOROURACIL [Concomitant]
     Active Substance: FLUOROURACIL
  5. DENOSUMAB [Concomitant]
     Active Substance: DENOSUMAB
  6. CARBOPLATIN [Concomitant]
     Active Substance: CARBOPLATIN
  7. PACLITAXEL [Concomitant]
     Active Substance: PACLITAXEL
  8. ITRACONAZOLE [Concomitant]
     Active Substance: ITRACONAZOLE

REACTIONS (3)
  - Disease progression [Fatal]
  - Drug resistance [Unknown]
  - Drug ineffective [Unknown]
